FAERS Safety Report 6211117-3 (Version None)
Quarter: 2009Q2

REPORT INFORMATION
  Report Type: 
  Country: None (occurrence: None)
  Receive Date: 20090528
  Receipt Date: 20090513
  Transmission Date: 20091009
  Serious: Yes (Other)
  Sender: FDA-Public Use
  Company Number: 2009AP001953

PATIENT
  Age: 11 Year
  Sex: Male

DRUGS (1)
  1. LITHIUM CARBONATE CAP [Suspect]

REACTIONS (3)
  - BENIGN INTRACRANIAL HYPERTENSION [None]
  - BLINDNESS [None]
  - OPTIC ATROPHY [None]
